FAERS Safety Report 22377576 (Version 1)
Quarter: 2023Q2

REPORT INFORMATION
  Report Type: Spontaneous
  Country: US (occurrence: US)
  Receive Date: 20230529
  Receipt Date: 20230529
  Transmission Date: 20230721
  Serious: No
  Sender: FDA-Public Use
  Company Number: ALC2023US001349

PATIENT
  Age: 78 Year
  Sex: Male

DRUGS (3)
  1. SIMBRINZA [Suspect]
     Active Substance: BRIMONIDINE TARTRATE\BRINZOLAMIDE
     Indication: Product used for unknown indication
     Dosage: 1 DRP, BID (IN EACH EYE, ONCE IN DAY TIME AND ANOTHER IN NIGHT TIME)
     Route: 047
     Dates: start: 20230307, end: 20230307
  2. BETIMOL [TIMOLOL MALEATE] [Concomitant]
     Indication: Product used for unknown indication
     Dosage: UNK
     Route: 047
  3. TRAVOPROST [Concomitant]
     Active Substance: TRAVOPROST
     Indication: Product used for unknown indication
     Dosage: UNK
     Route: 047

REACTIONS (2)
  - Visual impairment [Recovered/Resolved]
  - Vision blurred [Recovered/Resolved]

NARRATIVE: CASE EVENT DATE: 20230307
